FAERS Safety Report 12142061 (Version 1)
Quarter: 2016Q1

REPORT INFORMATION
  Report Type: Report from Study
  Country: CO (occurrence: CO)
  Receive Date: 20160303
  Receipt Date: 20160303
  Transmission Date: 20160526
  Serious: Yes (Other)
  Sender: FDA-Public Use
  Company Number: CO-ABBVIE-16K-036-1573518-00

PATIENT
  Age: 21 Year
  Sex: Female
  Weight: 54 kg

DRUGS (1)
  1. HUMIRA [Suspect]
     Active Substance: ADALIMUMAB
     Indication: ANKYLOSING SPONDYLITIS
     Route: 058
     Dates: start: 20150727, end: 20151103

REACTIONS (1)
  - Endometriosis [Recovering/Resolving]

NARRATIVE: CASE EVENT DATE: 20160223
